FAERS Safety Report 13113765 (Version 2)
Quarter: 2017Q1

REPORT INFORMATION
  Report Type: Report from Study
  Country: DE (occurrence: DE)
  Receive Date: 20170113
  Receipt Date: 20170306
  Transmission Date: 20170428
  Serious: Yes (Hospitalization)
  Sender: FDA-Public Use
  Company Number: DE-CELGENEUS-DEU-2017010513

PATIENT
  Age: 55 Year
  Sex: Female
  Weight: 56 kg

DRUGS (4)
  1. EPIRUBICIN [Suspect]
     Active Substance: EPIRUBICIN
     Indication: BREAST CANCER
     Dosage: 240 MILLIGRAM
     Route: 041
     Dates: start: 20161031, end: 20161206
  2. PERTUZUMAB [Suspect]
     Active Substance: PERTUZUMAB
     Indication: PRODUCT USED FOR UNKNOWN INDICATION
     Dosage: 840 IU (INTERNATIONAL UNIT)
     Route: 065
     Dates: start: 20161221
  3. ABRAXANE [Suspect]
     Active Substance: PACLITAXEL
     Indication: BREAST CANCER
     Dosage: 535  MILLIGRAM
     Route: 041
     Dates: start: 20161220, end: 20161220
  4. TRASTUZUMAB [Suspect]
     Active Substance: TRASTUZUMAB
     Indication: PRODUCT USED FOR UNKNOWN INDICATION
     Dosage: 445 IU (INTERNATIONAL UNIT)
     Route: 065
     Dates: start: 20161221

REACTIONS (1)
  - Leukocytosis [Recovered/Resolved]

NARRATIVE: CASE EVENT DATE: 20170102
